FAERS Safety Report 22288021 (Version 1)
Quarter: 2023Q2

REPORT INFORMATION
  Report Type: Spontaneous
  Country: US (occurrence: None)
  Receive Date: 20230504
  Receipt Date: 20230504
  Transmission Date: 20230721
  Serious: No
  Sender: FDA-Public Use
  Company Number: None

PATIENT
  Age: 56 Year
  Sex: Male

DRUGS (1)
  1. ABIRATERONE [Suspect]
     Active Substance: ABIRATERONE
     Dosage: FREQUENCY : DAILY;?
     Route: 048
     Dates: start: 202203

REACTIONS (7)
  - Vision blurred [None]
  - Muscle spasms [None]
  - Hypoaesthesia [None]
  - Transient ischaemic attack [None]
  - Chest discomfort [None]
  - Fatigue [None]
  - Blood pressure increased [None]

NARRATIVE: CASE EVENT DATE: 20230426
